FAERS Safety Report 8311179-3 (Version None)
Quarter: 2012Q1

REPORT INFORMATION
  Report Type: 
  Country: None (occurrence: None)
  Receive Date: 20120315
  Receipt Date: 20101117
  Transmission Date: 20120608
  Serious: No
  Sender: FDA-Public Use
  Company Number: PHHY2010US78341

PATIENT
  Sex: Male

DRUGS (1)
  1. GILENYA [Suspect]
     Indication: MULTIPLE SCLEROSIS RELAPSE
     Dosage: 0.5 MG, DAILY, ORAL
     Route: 048
     Dates: start: 20101111, end: 20101117

REACTIONS (3)
  - GLOSSODYNIA [None]
  - DYSPEPSIA [None]
  - TONGUE DISCOLOURATION [None]
